FAERS Safety Report 6229438-7 (Version None)
Quarter: 2009Q2

REPORT INFORMATION
  Report Type: 
  Country: None (occurrence: None)
  Receive Date: 20090615
  Receipt Date: 20090608
  Transmission Date: 20091009
  Serious: Yes (Hospitalization)
  Sender: FDA-Public Use
  Company Number: A0730990A

PATIENT
  Sex: Male

DRUGS (1)
  1. AVANDIA [Suspect]
     Indication: TYPE 2 DIABETES MELLITUS
     Route: 048

REACTIONS (5)
  - BRAIN MASS [None]
  - CEREBELLAR INFARCTION [None]
  - EMBOLIC STROKE [None]
  - HYDROCEPHALUS [None]
  - MYOCARDIAL INFARCTION [None]
